FAERS Safety Report 20663678 (Version 8)
Quarter: 2022Q4

REPORT INFORMATION
  Report Type: Report from Study
  Country: US (occurrence: US)
  Receive Date: 20220401
  Receipt Date: 20221007
  Transmission Date: 20230113
  Serious: Yes (Other)
  Sender: FDA-Public Use
  Company Number: US-NOVARTISTESTPH-NVSC2022US074357

PATIENT
  Sex: Male

DRUGS (3)
  1. ENTRESTO [Suspect]
     Active Substance: SACUBITRIL\VALSARTAN
     Indication: Product used for unknown indication
     Dosage: 1 DOSAGE FORM, (24/26 MG) BID
     Route: 048
  2. METOPROLOL [Suspect]
     Active Substance: METOPROLOL
     Indication: Product used for unknown indication
     Dosage: UNK, (HIGHEST DOSE)
     Route: 065
  3. VIAGRA [Suspect]
     Active Substance: SILDENAFIL CITRATE
     Indication: Product used for unknown indication
     Dosage: UNK
     Route: 065

REACTIONS (14)
  - Deafness [Unknown]
  - Atrial fibrillation [Unknown]
  - Nocturia [Unknown]
  - Joint swelling [Unknown]
  - Weight increased [Unknown]
  - Decreased activity [Unknown]
  - Hypotension [Unknown]
  - Photophobia [Unknown]
  - Atrial flutter [Unknown]
  - Ejection fraction abnormal [Unknown]
  - Memory impairment [Unknown]
  - Cough [Unknown]
  - Throat clearing [Unknown]
  - Wrong technique in product usage process [Unknown]
